FAERS Safety Report 9484829 (Version 1)
Quarter: 2013Q3

REPORT INFORMATION
  Report Type: Spontaneous
  Country: FR (occurrence: FR)
  Receive Date: 20130828
  Receipt Date: 20130828
  Transmission Date: 20140515
  Serious: Yes (Hospitalization)
  Sender: FDA-Public Use
  Company Number: FR-GLAXOSMITHKLINE-B0917155A

PATIENT
  Age: 58 Year
  Sex: Female

DRUGS (7)
  1. ZELITREX [Suspect]
     Indication: PRODUCT USED FOR UNKNOWN INDICATION
     Dosage: 500MG TWICE PER DAY
     Route: 048
     Dates: start: 2012
  2. MABTHERA [Suspect]
     Indication: B-CELL LYMPHOMA
     Dosage: 1G CYCLIC
     Route: 042
     Dates: start: 20130618, end: 20130704
  3. BACTRIM [Suspect]
     Indication: PROPHYLAXIS
     Route: 048
     Dates: start: 2012, end: 20130724
  4. SPECIAFOLDINE [Suspect]
     Indication: PRODUCT USED FOR UNKNOWN INDICATION
     Dosage: 5MG THREE TIMES PER DAY
     Route: 048
     Dates: start: 2012
  5. LEVOTHYROX [Suspect]
     Indication: PRODUCT USED FOR UNKNOWN INDICATION
     Dosage: 87.5MCG PER DAY
     Route: 048
  6. SOLUMEDROL [Suspect]
     Indication: PREMEDICATION
     Dosage: 120MG CYCLIC
     Route: 042
     Dates: start: 20130618, end: 20130704
  7. CORTANCYL [Suspect]
     Indication: PREMEDICATION
     Dosage: 40MG PER DAY
     Route: 048
     Dates: start: 20130618, end: 20130703

REACTIONS (2)
  - Leukopenia [Recovered/Resolved]
  - Neutropenia [Recovered/Resolved]
